FAERS Safety Report 8172540-3 (Version None)
Quarter: 2012Q1

REPORT INFORMATION
  Report Type: 
  Country: None (occurrence: None)
  Receive Date: 20120223
  Receipt Date: 20120213
  Transmission Date: 20120608
  Serious: Yes (Hospitalization)
  Sender: FDA-Public Use
  Company Number: 2012-00189

PATIENT
  Age: 25 Year
  Sex: Female
  Weight: 60 kg

DRUGS (1)
  1. AMLODIPINE [Suspect]
     Indication: PRODUCT USED FOR UNKNOWN INDICATION
     Dosage: INGESTION OF 40 TABLETS (10 MG)

REACTIONS (5)
  - CONFUSIONAL STATE [None]
  - LETHARGY [None]
  - HYPOTENSION [None]
  - SINUS TACHYCARDIA [None]
  - INCORRECT DOSE ADMINISTERED [None]
